FAERS Safety Report 16665128 (Version 1)
Quarter: 2019Q3

REPORT INFORMATION
  Report Type: Spontaneous
  Country: IN (occurrence: IN)
  Receive Date: 20190803
  Receipt Date: 20190803
  Transmission Date: 20191004
  Serious: Yes (Other)
  Sender: FDA-Public Use
  Company Number: IN-ACCORD-150259

PATIENT
  Age: 25 Year
  Sex: Male

DRUGS (10)
  1. MORPHINE [Concomitant]
     Active Substance: MORPHINE
     Indication: ARTHRITIS REACTIVE
  2. HYDROXYCHLOROQUINE [Concomitant]
     Active Substance: HYDROXYCHLOROQUINE
     Indication: ARTHRITIS REACTIVE
  3. DEXAMETHASONE. [Concomitant]
     Active Substance: DEXAMETHASONE
     Indication: ARTHRITIS REACTIVE
     Dosage: PULSE
     Route: 014
  4. ETANERCEPT [Concomitant]
     Active Substance: ETANERCEPT
     Indication: ARTHRITIS REACTIVE
  5. INFLIXIMAB [Concomitant]
     Active Substance: INFLIXIMAB
     Indication: ARTHRITIS REACTIVE
  6. SULFASALAZINE. [Concomitant]
     Active Substance: SULFASALAZINE
     Indication: ARTHRITIS REACTIVE
  7. INFLIXIMAB [Concomitant]
     Active Substance: INFLIXIMAB
     Indication: ARTHRITIS REACTIVE
  8. METHOTREXATE. [Suspect]
     Active Substance: METHOTREXATE
     Indication: ARTHRITIS REACTIVE
     Dosage: 20-25 MG
  9. ADALIMUMAB [Suspect]
     Active Substance: ADALIMUMAB
     Indication: ARTHRITIS REACTIVE
  10. SECUKINUMAB. [Concomitant]
     Active Substance: SECUKINUMAB
     Indication: ARTHRITIS REACTIVE

REACTIONS (2)
  - Transaminases increased [Recovered/Resolved]
  - Lower respiratory tract infection [Recovered/Resolved]
